APPROVED DRUG PRODUCT: ONTRALFY
Active Ingredient: TIZANIDINE HYDROCHLORIDE
Strength: EQ 2MG BASE/5ML
Dosage Form/Route: SOLUTION;ORAL
Application: N216190 | Product #001
Applicant: FIDELITY BIOPHARMA CO USA
Approved: Dec 12, 2024 | RLD: Yes | RS: Yes | Type: RX

PATENTS:
Patent 12263158 | Expires: May 7, 2042
Patent 12042484 | Expires: May 7, 2042